FAERS Safety Report 9626822 (Version 1)
Quarter: 2013Q4

REPORT INFORMATION
  Report Type: Spontaneous
  Country: FR (occurrence: FR)
  Receive Date: 20131016
  Receipt Date: 20131016
  Transmission Date: 20140711
  Serious: Yes (Hospitalization)
  Sender: FDA-Public Use
  Company Number: FR-TEVA-436665ISR

PATIENT
  Age: 17 Year
  Sex: Female

DRUGS (2)
  1. ANTADYS [Suspect]
     Dosage: 12 DF IN 1 TIME
     Route: 048
     Dates: start: 20120801, end: 20120801
  2. OESTRO-PROGESTATIVE PILL [Concomitant]

REACTIONS (7)
  - Renal failure acute [Recovering/Resolving]
  - Poisoning deliberate [Recovering/Resolving]
  - Back pain [Recovered/Resolved]
  - Abdominal pain upper [Recovered/Resolved]
  - Nausea [Recovered/Resolved]
  - Vomiting [Recovered/Resolved]
  - Decreased appetite [Recovering/Resolving]
